FAERS Safety Report 25186302 (Version 3)
Quarter: 2025Q2

REPORT INFORMATION
  Report Type: Report from Study
  Country: US (occurrence: US)
  Receive Date: 20250410
  Receipt Date: 20250616
  Transmission Date: 20250716
  Serious: Yes (Other)
  Sender: NOVARTIS
  Company Number: US-002147023-NVSC2025US057028

PATIENT
  Sex: Male

DRUGS (20)
  1. KESIMPTA [Suspect]
     Active Substance: OFATUMUMAB
     Indication: Product used for unknown indication
     Route: 065
     Dates: start: 202403
  2. KESIMPTA [Suspect]
     Active Substance: OFATUMUMAB
     Dosage: UNK, Q4W (1X/4WEEKS)
     Route: 065
  3. KESIMPTA [Suspect]
     Active Substance: OFATUMUMAB
     Dosage: 20 MG, QMO (INJECTION)
     Route: 065
  4. BACLOFEN [Concomitant]
     Active Substance: BACLOFEN
     Indication: Muscle spasms
     Route: 065
  5. BACLOFEN [Concomitant]
     Active Substance: BACLOFEN
     Dosage: UNK, BID
     Route: 048
  6. BACLOFEN [Concomitant]
     Active Substance: BACLOFEN
     Dosage: 30 MG, BID
     Route: 065
  7. BACLOFEN [Concomitant]
     Active Substance: BACLOFEN
     Route: 065
  8. ZANAFLEX [Concomitant]
     Active Substance: TIZANIDINE HYDROCHLORIDE
     Indication: Product used for unknown indication
     Dosage: 4 MG, BID (3 IN THE MORNING AND EVENING) (TABLET)
     Route: 048
  9. ZANAFLEX [Concomitant]
     Active Substance: TIZANIDINE HYDROCHLORIDE
     Route: 065
  10. VOLTAREN [Concomitant]
     Active Substance: DICLOFENAC SODIUM
     Indication: Product used for unknown indication
     Route: 065
  11. FLOMAX [Concomitant]
     Active Substance: TAMSULOSIN HYDROCHLORIDE
     Indication: Bladder disorder
     Route: 065
  12. HYDROCODONE [Concomitant]
     Active Substance: HYDROCODONE
     Indication: Product used for unknown indication
     Route: 065
  13. FENTANYL [Concomitant]
     Active Substance: FENTANYL
     Indication: Product used for unknown indication
     Route: 065
  14. PROVIGIL [Concomitant]
     Active Substance: MODAFINIL
     Indication: Product used for unknown indication
     Dosage: 200 MG, QD (IN THE MORNING)
     Route: 048
  15. VALIUM [Concomitant]
     Active Substance: DIAZEPAM
     Indication: Product used for unknown indication
     Route: 065
  16. VITAMIN D [Concomitant]
     Active Substance: VITAMIN D NOS
     Indication: Product used for unknown indication
     Route: 065
  17. TESTOSTERONE [Concomitant]
     Active Substance: TESTOSTERONE
     Indication: Product used for unknown indication
     Route: 065
  18. CRESTOR [Concomitant]
     Active Substance: ROSUVASTATIN CALCIUM
     Indication: Blood cholesterol abnormal
     Route: 048
  19. AVONEX [Concomitant]
     Active Substance: INTERFERON BETA-1A
     Indication: Product used for unknown indication
     Dosage: UNK, QW (PREVIOUSLY)
     Route: 065
  20. TECFIDERA [Concomitant]
     Active Substance: DIMETHYL FUMARATE
     Indication: Product used for unknown indication
     Route: 065

REACTIONS (14)
  - Seborrhoeic dermatitis [Unknown]
  - Alopecia [Unknown]
  - Swelling face [Unknown]
  - Eye ulcer [Unknown]
  - Skin infection [Unknown]
  - Skin disorder [Unknown]
  - Product tampering [Unknown]
  - Product distribution issue [Unknown]
  - Urinary tract infection [Unknown]
  - Sebaceous glands overactivity [Unknown]
  - Scrotal swelling [Unknown]
  - Penile pigmentation [Unknown]
  - Erythema [Unknown]
  - Hypersensitivity [Unknown]
